FAERS Safety Report 23089667 (Version 2)
Quarter: 2023Q4

REPORT INFORMATION
  Report Type: Report from Study
  Country: US (occurrence: US)
  Receive Date: 20231020
  Receipt Date: 20231026
  Transmission Date: 20240110
  Serious: Yes (Other)
  Sender: FDA-Public Use
  Company Number: US-002147023-NVSC2023US221618

PATIENT
  Sex: Female

DRUGS (2)
  1. COSENTYX [Suspect]
     Active Substance: SECUKINUMAB
     Indication: Psoriasis
     Dosage: UNK
     Route: 065
  2. COSENTYX [Suspect]
     Active Substance: SECUKINUMAB
     Indication: Psoriatic arthropathy
     Dosage: 150 MG
     Route: 065
     Dates: start: 20231009

REACTIONS (11)
  - Osteoarthritis [Unknown]
  - Psoriatic arthropathy [Unknown]
  - Arthralgia [Unknown]
  - Arthritis [Unknown]
  - Joint lock [Unknown]
  - Seborrhoeic keratosis [Unknown]
  - Diarrhoea [Unknown]
  - Fatigue [Unknown]
  - Psoriasis [Unknown]
  - Skin lesion [Unknown]
  - Therapeutic response shortened [Unknown]
